FAERS Safety Report 20189837 (Version 1)
Quarter: 2021Q4

REPORT INFORMATION
  Report Type: Spontaneous
  Country: US (occurrence: US)
  Receive Date: 20211215
  Receipt Date: 20211215
  Transmission Date: 20220303
  Serious: No
  Sender: FDA-Public Use
  Company Number: US-REGENERON PHARMACEUTICALS, INC.-2021-31302

PATIENT

DRUGS (1)
  1. EYLEA [Suspect]
     Active Substance: AFLIBERCEPT
     Indication: Macular degeneration
     Dosage: VARIES BETWEEN A MONTH AND A MONTH A HALF OR SOMETIMES EVERY MONTH OR SOMETIMES LONGER IN RIGHT EYE
     Route: 031

REACTIONS (4)
  - Rhinorrhoea [Unknown]
  - Eye irritation [Recovered/Resolved]
  - Ocular hyperaemia [Unknown]
  - Lacrimation increased [Recovered/Resolved]
